FAERS Safety Report 7524633-9 (Version None)
Quarter: 2011Q2

REPORT INFORMATION
  Report Type: 
  Country: None (occurrence: None)
  Receive Date: 20110606
  Receipt Date: 20110525
  Transmission Date: 20111010
  Serious: Yes (Hospitalization, Other)
  Sender: FDA-Public Use
  Company Number: JP-JNJFOC-20110512535

PATIENT
  Age: 86 Year
  Sex: Female

DRUGS (6)
  1. ZOLOFT [Interacting]
     Indication: DEPRESSION
     Route: 048
     Dates: start: 20100903
  2. DIGOSIN [Concomitant]
     Indication: ANGINA PECTORIS
     Route: 048
     Dates: start: 20010704
  3. METFORMIN HCL [Concomitant]
     Indication: DIABETES MELLITUS
     Route: 048
     Dates: start: 20100203
  4. SIGMART [Concomitant]
     Indication: ANGINA PECTORIS
     Route: 048
     Dates: start: 20010704
  5. INHIBACE [Concomitant]
     Indication: ANGINA PECTORIS
     Route: 048
     Dates: start: 20010704
  6. GALANTAMINE HYDROBROMIDE [Suspect]
     Indication: DEMENTIA ALZHEIMER'S TYPE
     Route: 048
     Dates: start: 20110511, end: 20110519

REACTIONS (3)
  - HAEMOGLOBIN DECREASED [None]
  - ALTERED STATE OF CONSCIOUSNESS [None]
  - DRUG INTERACTION [None]
